FAERS Safety Report 6657808-1 (Version None)
Quarter: 2010Q1

REPORT INFORMATION
  Report Type: 
  Country: None (occurrence: None)
  Receive Date: 20100330
  Receipt Date: 20100317
  Transmission Date: 20100710
  Serious: Yes (Other)
  Sender: FDA-Public Use
  Company Number: US-ELI_LILLY_AND_COMPANY-US201003005133

PATIENT
  Sex: Female

DRUGS (2)
  1. CYMBALTA [Suspect]
     Indication: DEPRESSION
     Dosage: 60 MG, DAILY (1/D)
     Dates: start: 20080101
  2. CYMBALTA [Suspect]
     Dosage: 60 MG, 2/D
     Dates: end: 20100317

REACTIONS (4)
  - ARTHRITIS [None]
  - DRUG INEFFECTIVE [None]
  - FOOT DEFORMITY [None]
  - INTERVERTEBRAL DISC OPERATION [None]
